FAERS Safety Report 6565894-2 (Version None)
Quarter: 2010Q1

REPORT INFORMATION
  Report Type: 
  Country: None (occurrence: None)
  Receive Date: 20100127
  Receipt Date: 20100114
  Transmission Date: 20100710
  Serious: Yes (Life-Threatening)
  Sender: FDA-Public Use
  Company Number: 2010005751

PATIENT
  Age: 72 Year
  Sex: Male

DRUGS (1)
  1. DALTEPARIN SODIUM [Suspect]
     Dates: start: 20091130

REACTIONS (4)
  - ANAEMIA [None]
  - FATIGUE [None]
  - LUNG NEOPLASM MALIGNANT [None]
  - MALIGNANT NEOPLASM PROGRESSION [None]
